FAERS Safety Report 17599630 (Version 3)
Quarter: 2020Q2

REPORT INFORMATION
  Report Type: Spontaneous
  Country: US (occurrence: US)
  Receive Date: 20200330
  Receipt Date: 20200428
  Transmission Date: 20200713
  Serious: Yes (Hospitalization, Other)
  Sender: FDA-Public Use
  Company Number: US-PFIZER INC-2020131627

PATIENT
  Age: 43 Year
  Sex: Male
  Weight: 96.62 kg

DRUGS (11)
  1. DEXAMETHASONE. [Suspect]
     Active Substance: DEXAMETHASONE
     Indication: MANTLE CELL LYMPHOMA
     Dosage: UNK, CYCLIC (6 CYCLES)
     Dates: start: 20090914, end: 20100215
  2. ETOPOSIDE. [Suspect]
     Active Substance: ETOPOSIDE
     Indication: MANTLE CELL LYMPHOMA
     Dosage: UNK (AUTOLOGOUS STEM CELL TRANSPLANT)
     Dates: start: 2010
  3. CYTOXAN [Suspect]
     Active Substance: CYCLOPHOSPHAMIDE
     Dosage: UNK
     Dates: start: 2010
  4. VINCRISTINE SULFATE. [Suspect]
     Active Substance: VINCRISTINE SULFATE
     Indication: MANTLE CELL LYMPHOMA
     Dosage: UNK, CYCLIC (6 CYCLES)
     Dates: start: 20090914, end: 20100215
  5. DOXORUBICIN HCL [Suspect]
     Active Substance: DOXORUBICIN HYDROCHLORIDE
     Indication: MANTLE CELL LYMPHOMA
     Dosage: UNK, CYCLIC (6 CYCLES)
     Dates: start: 20090914, end: 20100215
  6. CYTARABINE. [Suspect]
     Active Substance: CYTARABINE
     Indication: MANTLE CELL LYMPHOMA
     Dosage: UNK, CYCLIC (6 CYCLES)
     Dates: start: 20090914, end: 20100215
  7. CYCLOPHOSPHAMIDE. [Suspect]
     Active Substance: CYCLOPHOSPHAMIDE
     Indication: MANTLE CELL LYMPHOMA
     Dosage: UNK (AUTOLOGOUS STEM CELL TRANSPLANT)
     Dates: start: 20090914, end: 20100215
  8. CYCLOPHOSPHAMIDE. [Suspect]
     Active Substance: CYCLOPHOSPHAMIDE
     Dosage: UNK
     Dates: start: 2010
  9. BUSULFAN. [Suspect]
     Active Substance: BUSULFAN
     Indication: MANTLE CELL LYMPHOMA
     Dosage: UNK (AUTOLOGOUS STEM CELL TRANSPLANT)
     Dates: start: 2010
  10. ETOPOSIDE. [Suspect]
     Active Substance: ETOPOSIDE
     Indication: STEM CELL TRANSPLANT
  11. METHOTREXATE SODIUM. [Suspect]
     Active Substance: METHOTREXATE SODIUM
     Indication: MANTLE CELL LYMPHOMA
     Dosage: UNK, CYCLIC (6 CYCLES)
     Dates: start: 20090914, end: 20100215

REACTIONS (1)
  - Sweat gland tumour [Recovered/Resolved]

NARRATIVE: CASE EVENT DATE: 2012
